FAERS Safety Report 7879028-5 (Version None)
Quarter: 2011Q4

REPORT INFORMATION
  Report Type: 
  Country: None (occurrence: None)
  Receive Date: 20111101
  Receipt Date: 20111025
  Transmission Date: 20120403
  Serious: Yes (Hospitalization, Other)
  Sender: FDA-Public Use
  Company Number: PHHY2011CA24788

PATIENT
  Sex: Female
  Weight: 63.3 kg

DRUGS (5)
  1. ZOLEDRONOC ACID [Suspect]
     Indication: OSTEOPOROSIS
     Dosage: 5 MG/100 ML YEARLY
     Route: 042
     Dates: start: 20100401
  2. VITAMIN D [Concomitant]
     Dosage: 1 DF, BID
  3. VITAMIN D [Concomitant]
     Dosage: 800 IU, UNK
     Dates: start: 20030101
  4. CALCIUM [Concomitant]
     Dosage: 1 DF, BID
  5. CALCIUM [Concomitant]
     Dosage: 500 IU, UNK
     Dates: start: 20030101

REACTIONS (4)
  - LOSS OF CONSCIOUSNESS [None]
  - FALL [None]
  - SPINAL FRACTURE [None]
  - PAIN [None]
